FAERS Safety Report 9991529 (Version 1)
Quarter: 2014Q1

REPORT INFORMATION
  Report Type: Report from Study
  Country: US (occurrence: US)
  Receive Date: 20140310
  Receipt Date: 20140310
  Transmission Date: 20141002
  Serious: Yes (Hospitalization, Other)
  Sender: FDA-Public Use
  Company Number: US-ABBVIE-13P-163-1133473-00

PATIENT
  Age: 33 Year
  Sex: Female

DRUGS (6)
  1. HUMIRA [Suspect]
     Indication: CROHN^S DISEASE
     Dosage: ON THURSDAY
     Dates: start: 20130409, end: 20130804
  2. FRAGMIN [Concomitant]
     Indication: PRODUCT USED FOR UNKNOWN INDICATION
  3. BLOOD THINNER [Concomitant]
     Indication: PULMONARY EMBOLISM
     Dates: start: 201205
  4. ASACOL HC [Concomitant]
     Indication: CROHN^S DISEASE
  5. COMBIPATCH [Concomitant]
     Indication: BLOOD OESTROGEN DECREASED
     Dates: start: 201205
  6. ZOLOFT [Concomitant]
     Indication: ANXIETY
     Dates: start: 201307

REACTIONS (3)
  - Abdominal pain [Recovered/Resolved]
  - Abdominal pain [Recovered/Resolved]
  - Anxiety [Unknown]
